FAERS Safety Report 23172848 (Version 1)
Quarter: 2023Q4

REPORT INFORMATION
  Report Type: Spontaneous
  Country: US (occurrence: US)
  Receive Date: 20231110
  Receipt Date: 20231110
  Transmission Date: 20240109
  Serious: No
  Sender: FDA-Public Use
  Company Number: US-UPSHER-SMITH LABORATORIES, LLC-2023USL00677

PATIENT
  Sex: Female

DRUGS (2)
  1. JANTOVEN [Suspect]
     Active Substance: WARFARIN SODIUM
     Indication: Factor V Leiden mutation
     Dosage: UNK
  2. JANTOVEN [Suspect]
     Active Substance: WARFARIN SODIUM
     Dosage: GOT TO 2.5 MG

REACTIONS (1)
  - International normalised ratio fluctuation [Recovered/Resolved]
